FAERS Safety Report 9533571 (Version 2)
Quarter: 2013Q3

REPORT INFORMATION
  Report Type: Spontaneous
  Country: US (occurrence: US)
  Receive Date: 20130918
  Receipt Date: 20130918
  Transmission Date: 20140515
  Serious: No
  Sender: FDA-Public Use
  Company Number: US-PURDUE-USA-2011-0076515

PATIENT
  Age: 36 Year
  Sex: Female

DRUGS (2)
  1. BUTRANS [Suspect]
     Indication: PAIN
     Dosage: 20 MCG, Q1H
     Route: 062
     Dates: start: 20110927
  2. BUTRANS [Suspect]
     Dosage: 10 MCG, Q1H

REACTIONS (6)
  - Wrong technique in drug usage process [Unknown]
  - Application site rash [Not Recovered/Not Resolved]
  - Application site pruritus [Unknown]
  - Product adhesion issue [Unknown]
  - Application site irritation [Unknown]
  - Application site erosion [Unknown]
